FAERS Safety Report 4918364-9 (Version None)
Quarter: 2006Q1

REPORT INFORMATION
  Report Type: 
  Country: None (occurrence: None)
  Receive Date: 20060215
  Receipt Date: 20060215
  Transmission Date: 20060701
  Serious: No
  Sender: FDA-Public Use
  Company Number: None

PATIENT
  Age: 18 Year
  Sex: Female
  Weight: 54.4316 kg

DRUGS (2)
  1. YASMIN [Suspect]
     Indication: MENSTRUATION IRREGULAR
     Dates: start: 20050514, end: 20051230
  2. YASMIN [Suspect]
     Indication: MUSCLE SPASMS
     Dates: start: 20050514, end: 20051230

REACTIONS (7)
  - ANXIETY [None]
  - CONTACT LENS COMPLICATION [None]
  - DEPRESSION [None]
  - DRY EYE [None]
  - FEELING ABNORMAL [None]
  - MIGRAINE [None]
  - SUICIDAL IDEATION [None]
